FAERS Safety Report 7338250-7 (Version None)
Quarter: 2011Q1

REPORT INFORMATION
  Report Type: 
  Country: None (occurrence: None)
  Receive Date: 20110308
  Receipt Date: 20110223
  Transmission Date: 20110831
  Serious: Yes (Hospitalization)
  Sender: FDA-Public Use
  Company Number: FR-ELI_LILLY_AND_COMPANY-FR201103001051

PATIENT
  Age: 48 Year
  Sex: Female

DRUGS (9)
  1. IMOVANE [Concomitant]
     Dosage: 7.5 MG, DAILY (1/D)
     Route: 048
  2. NOCTRAN 10 [Concomitant]
     Dosage: 10 MG, DAILY (1/D)
     Route: 048
  3. CYMBALTA [Suspect]
     Dosage: 60 MG, 2/D
     Route: 048
     Dates: end: 20100619
  4. RAMIPRIL [Concomitant]
     Dosage: 5 MG, DAILY (1/D)
     Route: 048
  5. ATARAX [Concomitant]
     Dosage: 75 MG, DAILY (1/D)
     Route: 048
     Dates: start: 20100520, end: 20100619
  6. LANTUS [Concomitant]
     Route: 058
     Dates: end: 20100619
  7. NEXIUM [Concomitant]
     Dosage: 60 MG, DAILY (1/D)
     Route: 048
  8. VALIUM [Concomitant]
     Dosage: 20 MG, DAILY (1/D)
     Route: 048
     Dates: start: 20100520
  9. CREON [Concomitant]
     Dosage: 7500 IU, DAILY (1/D)
     Route: 048

REACTIONS (5)
  - ABDOMINAL PAIN [None]
  - DECREASED APPETITE [None]
  - HYPERCALCAEMIA [None]
  - LIPASE INCREASED [None]
  - PANCREATITIS ACUTE [None]
